FAERS Safety Report 10990442 (Version 1)
Quarter: 2015Q2

REPORT INFORMATION
  Report Type: Spontaneous
  Country: US (occurrence: US)
  Receive Date: 20150406
  Receipt Date: 20150406
  Transmission Date: 20150821
  Serious: No
  Sender: FDA-Public Use
  Company Number: US-009507513-1504USA002283

PATIENT
  Age: 64 Year
  Sex: Female

DRUGS (1)
  1. FOSAMAX [Suspect]
     Active Substance: ALENDRONATE SODIUM
     Indication: OSTEOPOROSIS
     Dosage: UNK
     Route: 048
     Dates: start: 201208, end: 20120831

REACTIONS (2)
  - Dysphagia [Unknown]
  - Back pain [Recovered/Resolved]

NARRATIVE: CASE EVENT DATE: 20120812
